FAERS Safety Report 5968468-7 (Version None)
Quarter: 2008Q4

REPORT INFORMATION
  Report Type: 
  Country: None (occurrence: None)
  Receive Date: 20081121
  Receipt Date: 20081121
  Transmission Date: 20090506
  Serious: Yes (Other)
  Sender: FDA-Public Use
  Company Number: None

PATIENT
  Age: 54 Year
  Sex: Female
  Weight: 68 kg

DRUGS (6)
  1. SIMCOR [Suspect]
     Indication: HYPERCHOLESTEROLAEMIA
     Dosage: DAILY PO  1 DOSE
     Route: 048
  2. ASMANEX-MOMETASONE [Concomitant]
  3. ALBUTEROL [Concomitant]
  4. CALAN [Concomitant]
  5. INDERAL SR [Concomitant]
  6. FORADIL [Concomitant]

REACTIONS (1)
  - DRUG HYPERSENSITIVITY [None]
